FAERS Safety Report 11967332 (Version 3)
Quarter: 2016Q1

REPORT INFORMATION
  Report Type: Spontaneous
  Country: DE (occurrence: DE)
  Receive Date: 20160127
  Receipt Date: 20160225
  Transmission Date: 20160526
  Serious: Yes (Other)
  Sender: FDA-Public Use
  Company Number: DE-ALLERGAN-1601707US

PATIENT
  Age: 66 Year
  Sex: Female

DRUGS (1)
  1. INFLANEFRAN FORTE, 10 MG/ML AUGENTROPFEN [Suspect]
     Active Substance: PREDNISOLONE ACETATE
     Indication: IRIDOCYCLITIS
     Dosage: 1 GTT, 5 TIMES A DAY
     Route: 047
     Dates: start: 20160115, end: 20160117

REACTIONS (3)
  - Fall [Recovered/Resolved]
  - Dizziness [Recovered/Resolved]
  - Hypertension [Recovered/Resolved]

NARRATIVE: CASE EVENT DATE: 20160115
